FAERS Safety Report 13727078 (Version 1)
Quarter: 2017Q3

REPORT INFORMATION
  Report Type: Spontaneous
  Country: US (occurrence: US)
  Receive Date: 20170707
  Receipt Date: 20170707
  Transmission Date: 20171127
  Serious: No
  Sender: FDA-Public Use
  Company Number: US-HERITAGE PHARMACEUTICALS-2017HTG00094

PATIENT
  Age: 60 Year
  Sex: Male

DRUGS (4)
  1. DOXEPIN [Concomitant]
     Active Substance: DOXEPIN
     Dosage: 50 MG, 1X/DAY
  2. BUSPIRONE [Concomitant]
     Active Substance: BUSPIRONE HYDROCHLORIDE
     Dosage: 20 MG, 2X/DAY
  3. HYDROXYZINE PAMOATE. [Suspect]
     Active Substance: HYDROXYZINE PAMOATE
     Indication: ANXIETY
     Dosage: 50 MG, UP TO 2X/DAY
     Route: 048
     Dates: start: 20170403
  4. PAROXETINE. [Concomitant]
     Active Substance: PAROXETINE
     Dosage: 20 MG, 2X/DAY

REACTIONS (1)
  - Diarrhoea [Recovered/Resolved]

NARRATIVE: CASE EVENT DATE: 20170404
